FAERS Safety Report 17071544 (Version 1)
Quarter: 2019Q4

REPORT INFORMATION
  Report Type: Other
  Country: GB (occurrence: GB)
  Receive Date: 20191125
  Receipt Date: 20191125
  Transmission Date: 20200122
  Serious: Yes (Hospitalization, Other)
  Sender: FDA-Public Use
  Company Number: GB-ASPEN-GLO2019GB012314

PATIENT
  Age: 41 Year
  Sex: Male

DRUGS (3)
  1. DEXAMETHASONE. [Suspect]
     Active Substance: DEXAMETHASONE
     Indication: OBSTRUCTIVE AIRWAYS DISORDER
     Dosage: STARTED AS 8MG MORNING AND LUNCH FOR 3 DAYS REDUCING BY 2MG EVERY THREE DAYS.
     Route: 048
     Dates: start: 20191021, end: 20191023
  2. DEXAMETHASONE. [Suspect]
     Active Substance: DEXAMETHASONE
     Dosage: 24 MG
     Route: 042
     Dates: start: 20191016, end: 20191021
  3. IBUPROFEN. [Suspect]
     Active Substance: IBUPROFEN
     Indication: ANALGESIC THERAPY
     Dosage: 400MG 3 TIMES DAILY.
     Route: 048

REACTIONS (2)
  - Duodenal ulcer perforation [Recovering/Resolving]
  - Abdominal pain [Unknown]

NARRATIVE: CASE EVENT DATE: 20191023
